FAERS Safety Report 4488819-2 (Version None)
Quarter: 2004Q4

REPORT INFORMATION
  Report Type: 
  Country: None (occurrence: None)
  Receive Date: 20041029
  Receipt Date: 20030605
  Transmission Date: 20050328
  Serious: Yes (Hospitalization, Other)
  Sender: FDA-Public Use
  Company Number: US-MERCK-0306USA00774

PATIENT
  Age: 60 Year
  Sex: Female
  Weight: 101 kg

DRUGS (5)
  1. VIOXX [Suspect]
     Route: 048
     Dates: start: 20010101, end: 20010801
  2. ZESTRIL [Concomitant]
     Route: 048
  3. GLUCOPHAGE [Concomitant]
     Route: 048
  4. METHYLPREDNISOLONE [Concomitant]
     Route: 065
  5. LEVAQUIN [Concomitant]
     Route: 048

REACTIONS (34)
  - ABSCESS [None]
  - ANAEMIA [None]
  - ARTHRALGIA [None]
  - ATRIAL FIBRILLATION [None]
  - ATRIAL FLUTTER [None]
  - BLOOD PRESSURE INCREASED [None]
  - CARDIAC FAILURE CONGESTIVE [None]
  - CAROTID BRUIT [None]
  - CLOSTRIDIUM COLITIS [None]
  - CONGESTIVE CARDIOMYOPATHY [None]
  - CONVULSION [None]
  - DIABETIC MICROANGIOPATHY [None]
  - DIABETIC NEUROPATHY [None]
  - DIARRHOEA [None]
  - GASTROINTESTINAL HAEMORRHAGE [None]
  - GRAFT THROMBOSIS [None]
  - HOARSENESS [None]
  - HYPERCHOLESTEROLAEMIA [None]
  - HYPERKALAEMIA [None]
  - HYPOXIC ENCEPHALOPATHY [None]
  - INSOMNIA [None]
  - ISCHAEMIA [None]
  - ISCHAEMIC HEPATITIS [None]
  - MYOCARDIAL ISCHAEMIA [None]
  - PULMONARY HYPERTENSION [None]
  - PYREXIA [None]
  - RENAL FAILURE [None]
  - RENAL FAILURE ACUTE [None]
  - SINUS ARREST [None]
  - SINUS BRADYCARDIA [None]
  - VERTIGO [None]
  - WEIGHT DECREASED [None]
  - WEIGHT FLUCTUATION [None]
  - WEIGHT INCREASED [None]
